FAERS Safety Report 5809969-1 (Version None)
Quarter: 2008Q3

REPORT INFORMATION
  Report Type: 
  Country: None (occurrence: None)
  Receive Date: 20080715
  Receipt Date: 20080711
  Transmission Date: 20090109
  Serious: Yes (Hospitalization)
  Sender: FDA-Public Use
  Company Number: GB-TEVA-174196ISR

PATIENT
  Age: 58 Year
  Sex: Female

DRUGS (1)
  1. TRIMETHOPRIM [Suspect]
     Indication: URINARY TRACT INFECTION

REACTIONS (5)
  - ACUTE PSYCHOSIS [None]
  - AGITATION [None]
  - CONFUSIONAL STATE [None]
  - HYPOACUSIS [None]
  - OBSESSIVE-COMPULSIVE DISORDER [None]
